FAERS Safety Report 15948341 (Version 1)
Quarter: 2019Q1

REPORT INFORMATION
  Report Type: Report from Study
  Country: US (occurrence: US)
  Receive Date: 20190212
  Receipt Date: 20190212
  Transmission Date: 20190417
  Serious: Yes (Hospitalization)
  Sender: FDA-Public Use
  Company Number: US-EMD SERONO-9070777

PATIENT
  Sex: Female

DRUGS (3)
  1. REBIF [Suspect]
     Active Substance: INTERFERON BETA-1A
     Indication: MULTIPLE SCLEROSIS
     Dosage: 8.8 UG FOR WEEK ONE TO TWO
     Route: 058
     Dates: start: 2009
  2. REBIF [Suspect]
     Active Substance: INTERFERON BETA-1A
     Dosage: 22 UG FOR WEEK THREE TO FOUR
     Route: 058
     Dates: start: 2009
  3. REBIF [Suspect]
     Active Substance: INTERFERON BETA-1A
     Dosage: 44 UG FROM WEEK FIVE
     Route: 058
     Dates: start: 2009

REACTIONS (7)
  - Gait disturbance [Not Recovered/Not Resolved]
  - Adverse drug reaction [Unknown]
  - Fall [Unknown]
  - Depressed mood [Unknown]
  - Hip arthroplasty [Unknown]
  - Influenza like illness [Recovered/Resolved]
  - Overweight [Unknown]

NARRATIVE: CASE EVENT DATE: 2009
